FAERS Safety Report 9256858 (Version 2)
Quarter: 2013Q2

REPORT INFORMATION
  Report Type: Spontaneous
  Country: FR (occurrence: None)
  Receive Date: 20130417
  Receipt Date: 20130507
  Transmission Date: 20140414
  Serious: Yes (Hospitalization)
  Sender: FDA-Public Use
  Company Number: GAM-094-13-FR

PATIENT
  Age: 23 Year
  Sex: Female

DRUGS (6)
  1. OCTAGAM [Suspect]
     Indication: IDIOPATHIC THROMBOCYTOPENIC PURPURA
     Dosage: 10 G (5X 1/TOTAL)
     Route: 042
  2. OCTAGAM [Suspect]
     Dosage: 10 G (5X 1/TOTAL)
     Route: 042
  3. LUTERAN [Suspect]
     Indication: ORAL CONTRACEPTION
     Route: 048
  4. CORTANCYL [Suspect]
     Indication: IDIOPATHIC THROMBOCYTOPENIC PURPURA
     Dosage: 30 MG (1X 1/D)
  5. HYDROXYZINE [Concomitant]
  6. POTASSIUM CHLORIDE [Concomitant]

REACTIONS (2)
  - Haemorrhagic transformation stroke [None]
  - Leukocytosis [None]
